FAERS Safety Report 4959530-6 (Version None)
Quarter: 2006Q1

REPORT INFORMATION
  Report Type: 
  Country: None (occurrence: None)
  Receive Date: 20060331
  Receipt Date: 20060329
  Transmission Date: 20060701
  Serious: Yes (Hospitalization)
  Sender: FDA-Public Use
  Company Number: US-GLAXOSMITHKLINE-A0599548A

PATIENT
  Sex: Female

DRUGS (2)
  1. PAXIL [Suspect]
     Indication: DEPRESSION
     Dosage: 10MG PER DAY
     Route: 048
  2. NO CONCURRENT MEDICATION [Concomitant]

REACTIONS (8)
  - ABASIA [None]
  - ABDOMINAL DISTENSION [None]
  - ANOREXIA [None]
  - ANXIETY [None]
  - APHASIA [None]
  - MEMORY IMPAIRMENT [None]
  - MOOD ALTERED [None]
  - RASH [None]
